FAERS Safety Report 14756121 (Version 1)
Quarter: 2018Q2

REPORT INFORMATION
  Report Type: Report from Study
  Country: TR (occurrence: TR)
  Receive Date: 20180413
  Receipt Date: 20180413
  Transmission Date: 20180711
  Serious: Yes (Other)
  Sender: FDA-Public Use
  Company Number: TR-ROCHE-1955579

PATIENT

DRUGS (1)
  1. MYCOPHENOLATE MOFETIL. [Suspect]
     Active Substance: MYCOPHENOLATE MOFETIL
     Indication: AUTOIMMUNE HEPATITIS
     Route: 065

REACTIONS (9)
  - Cytopenia [Unknown]
  - Gastroenteritis [Unknown]
  - Gastrointestinal disorder [Unknown]
  - Abdominal pain [Unknown]
  - Leukopenia [Unknown]
  - Lymphoproliferative disorder [Unknown]
  - Pneumonia [Unknown]
  - Headache [Unknown]
  - Oral herpes [Unknown]
